FAERS Safety Report 7794713-1 (Version None)
Quarter: 2011Q3

REPORT INFORMATION
  Report Type: 
  Country: None (occurrence: None)
  Receive Date: 20110929
  Receipt Date: 20110919
  Transmission Date: 20111222
  Serious: Yes (Other)
  Sender: FDA-Public Use
  Company Number: 2011SP044579

PATIENT
  Age: 49 Year
  Sex: Male

DRUGS (2)
  1. PEGINTERFERON ALPHA (INTERFERON ALFA) [Suspect]
     Indication: HEPATITIS C
     Dates: start: 20010101, end: 20010101
  2. RIBAVIRIN [Suspect]
     Indication: HEPATITIS C
     Dates: start: 20010101, end: 20010101

REACTIONS (2)
  - PULMONARY SARCOIDOSIS [None]
  - CUTANEOUS SARCOIDOSIS [None]
